FAERS Safety Report 12639851 (Version 2)
Quarter: 2017Q2

REPORT INFORMATION
  Report Type: Spontaneous
  Country: BR (occurrence: BR)
  Receive Date: 20160810
  Receipt Date: 20170616
  Transmission Date: 20170830
  Serious: Yes (Other)
  Sender: FDA-Public Use
  Company Number: BR-009507513-1509BRA008792

PATIENT
  Age: 30 Year
  Sex: Female

DRUGS (4)
  1. NUVARING [Suspect]
     Active Substance: ETHINYL ESTRADIOL\ETONOGESTREL
     Dosage: 1 DF(VAGINAL RING), CYCLICAL
     Route: 067
     Dates: start: 2015, end: 20151212
  2. NUVARING [Suspect]
     Active Substance: ETHINYL ESTRADIOL\ETONOGESTREL
     Indication: CONTRACEPTION
     Dosage: 1 DF(VAGINAL RING), CYCLICAL
     Route: 067
     Dates: start: 2012, end: 20150912
  3. NUVARING [Suspect]
     Active Substance: ETHINYL ESTRADIOL\ETONOGESTREL
     Dosage: 1 DF(VAGINAL RING), CYCLICAL
     Route: 067
  4. NUVARING [Suspect]
     Active Substance: ETHINYL ESTRADIOL\ETONOGESTREL
     Dosage: 1 DF(VAGINAL RING), CYCLICAL
     Route: 067
     Dates: end: 20170603

REACTIONS (9)
  - Attention deficit/hyperactivity disorder [Not Recovered/Not Resolved]
  - Abnormal withdrawal bleeding [Not Recovered/Not Resolved]
  - Incorrect drug administration duration [Unknown]
  - Gastritis [Not Recovered/Not Resolved]
  - Incorrect drug administration duration [Unknown]
  - Incorrect drug administration duration [Unknown]
  - Bipolar disorder [Not Recovered/Not Resolved]
  - Device expulsion [Recovered/Resolved]
  - Incorrect drug administration duration [Unknown]

NARRATIVE: CASE EVENT DATE: 2015
